FAERS Safety Report 6912901-0 (Version None)
Quarter: 2010Q3

REPORT INFORMATION
  Report Type: 
  Country: None (occurrence: None)
  Receive Date: 20100806
  Receipt Date: 20090319
  Transmission Date: 20110219
  Serious: No
  Sender: FDA-Public Use
  Company Number: US-PFIZER INC-2008159560

PATIENT
  Sex: Male
  Weight: 62.6 kg

DRUGS (2)
  1. DETROL LA [Suspect]
     Indication: HYPERTONIC BLADDER
     Dosage: 4 MG, 1X/DAY
     Dates: start: 20081001
  2. PRAVACHOL [Concomitant]
     Dosage: UNK

REACTIONS (1)
  - CONSTIPATION [None]
